FAERS Safety Report 23989431 (Version 1)
Quarter: 2024Q2

REPORT INFORMATION
  Report Type: Spontaneous
  Country: GB (occurrence: GB)
  Receive Date: 20240619
  Receipt Date: 20240619
  Transmission Date: 20240716
  Serious: Yes (Other)
  Sender: FDA-Public Use
  Company Number: None

PATIENT
  Age: 13 Year
  Sex: Male
  Weight: 65 kg

DRUGS (4)
  1. MONTELUKAST [Suspect]
     Active Substance: MONTELUKAST SODIUM
     Indication: Product used for unknown indication
     Dosage: STRENGTH: 5MG; AT NIGHT SUGAR FREE
     Dates: start: 20240501, end: 20240529
  2. BUDESONIDE\FORMOTEROL FUMARATE [Concomitant]
     Active Substance: BUDESONIDE\FORMOTEROL FUMARATE
     Dosage: ONE - TWO INHALATIONS TO BE TAKEN TWICE A DAY A...
     Dates: start: 20240311, end: 20240410
  3. PREDNISOLONE [Concomitant]
     Active Substance: PREDNISOLONE
     Dosage: MORNING
     Dates: start: 20240404, end: 20240502
  4. OMEPRAZOLE [Concomitant]
     Active Substance: DONEPEZIL HYDROCHLORIDE\OMEPRAZOLE\OMEPRAZOLE MAGNESIUM
     Dosage: TO REDUCE STOMACH ACID
     Dates: start: 20240513

REACTIONS (2)
  - Hallucination, auditory [Unknown]
  - Suicidal ideation [Unknown]
